FAERS Safety Report 9031464 (Version 1)
Quarter: 2013Q1

REPORT INFORMATION
  Report Type: Spontaneous
  Country: US (occurrence: US)
  Receive Date: 20130124
  Receipt Date: 20130124
  Transmission Date: 20140127
  Serious: Yes (Hospitalization)
  Sender: FDA-Public Use
  Company Number: US-ASTRAZENECA-2013SE03837

PATIENT
  Age: 62 Year
  Sex: Female
  Weight: 100.2 kg

DRUGS (16)
  1. LISINOPRIL [Suspect]
     Indication: BLOOD PRESSURE
     Route: 048
  2. CRESTOR [Suspect]
     Indication: HYPERLIPIDAEMIA
     Route: 048
     Dates: start: 2007, end: 20121224
  3. LANTUS INSULIN [Concomitant]
     Indication: DIABETES MELLITUS
     Dosage: 65 UNITS DAILY
     Route: 058
  4. PERCOCET [Concomitant]
     Indication: PAIN
     Route: 048
  5. RANEXA [Concomitant]
     Indication: ANGINA PECTORIS
     Route: 048
  6. BYSTOLIC [Concomitant]
     Indication: BLOOD PRESSURE
     Route: 048
  7. VIIBRYD [Concomitant]
     Indication: DEPRESSION
     Route: 048
  8. IMDUR [Concomitant]
     Indication: BLOOD PRESSURE
     Route: 048
  9. PLAVIX [Concomitant]
     Indication: ANTIPLATELET THERAPY
     Route: 048
  10. BENTYL [Concomitant]
     Indication: IRRITABLE BOWEL SYNDROME
     Route: 048
  11. ZANTAC [Concomitant]
     Indication: GASTROOESOPHAGEAL REFLUX DISEASE
     Route: 048
  12. JANUMET [Concomitant]
     Indication: DIABETES MELLITUS
     Dosage: 50-100 MG, BID
     Route: 048
  13. XANAX [Concomitant]
     Route: 048
  14. ASPIRIN [Concomitant]
     Indication: ANTIPLATELET THERAPY
     Route: 048
  15. VIT D [Concomitant]
     Indication: MEDICAL DIET
     Dosage: 5000U DAILY
     Route: 048
  16. NITROGLYCERIN [Concomitant]
     Indication: ANGINA PECTORIS
     Dosage: PRN
     Route: 061

REACTIONS (6)
  - Blood creatine phosphokinase increased [Recovered/Resolved]
  - Renal impairment [Recovered/Resolved]
  - Somnolence [Recovered/Resolved]
  - Rhabdomyolysis [Recovered/Resolved]
  - Lethargy [Recovered/Resolved]
  - Myalgia [Recovered/Resolved]
